FAERS Safety Report 5355525-1 (Version None)
Quarter: 2007Q2

REPORT INFORMATION
  Report Type: 
  Country: None (occurrence: None)
  Receive Date: 20070612
  Receipt Date: 20070612
  Transmission Date: 20071010
  Serious: No
  Sender: FDA-Public Use
  Company Number: None

PATIENT

DRUGS (3)
  1. FENTANYL [Suspect]
     Dosage: INJECTABLE
  2. MIDAZOLAM HCL [Suspect]
     Dosage: INJECTABLE
  3. MEDFUSION 3500 SYRINGE PUMP [Suspect]
     Dosage: SYRINGE PUMP

REACTIONS (3)
  - ILL-DEFINED DISORDER [None]
  - INCORRECT DOSE ADMINISTERED [None]
  - MEDICATION ERROR [None]
